FAERS Safety Report 14610291 (Version 5)
Quarter: 2018Q3

REPORT INFORMATION
  Report Type: Report from Study
  Country: FI (occurrence: FI)
  Receive Date: 20180307
  Receipt Date: 20180814
  Transmission Date: 20181010
  Serious: Yes (Hospitalization)
  Sender: FDA-Public Use
  Company Number: PHHO2018FI003311

PATIENT
  Age: 64 Year
  Sex: Female
  Weight: 88 kg

DRUGS (13)
  1. IMOCUR [Concomitant]
     Indication: DIARRHOEA
     Dosage: 1 DF, PRN
     Route: 048
     Dates: start: 20171128
  2. LETROZOLE. [Suspect]
     Active Substance: LETROZOLE
     Indication: BREAST CANCER
     Dosage: 2.5 MG, QD
     Route: 048
     Dates: start: 20171124
  3. LEE011 [Suspect]
     Active Substance: RIBOCICLIB
     Indication: BREAST CANCER
     Dosage: 600 MG, QD
     Route: 048
     Dates: start: 20171124, end: 20180222
  4. PRIMPERAN [Concomitant]
     Active Substance: METOCLOPRAMIDE HYDROCHLORIDE
     Indication: NAUSEA
     Dosage: 10 MG, PRN
     Route: 048
     Dates: start: 20171125
  5. PANTOPRAZOLE [Concomitant]
     Active Substance: PANTOPRAZOLE
     Indication: REFLUX GASTRITIS
     Dosage: 20 MG, PRN
     Route: 048
     Dates: start: 20171201
  6. DOXIMYCIN [Concomitant]
     Active Substance: DOXYCYCLINE
     Dosage: 150 MG, QD
     Route: 048
     Dates: start: 20171212, end: 20171212
  7. LOPERAMIDE [Concomitant]
     Active Substance: LOPERAMIDE
     Indication: DIARRHOEA
     Dosage: 2 MG, PRN
     Route: 048
     Dates: start: 20171128
  8. TAMOXIFEN [Concomitant]
     Active Substance: TAMOXIFEN
     Indication: PRODUCT USED FOR UNKNOWN INDICATION
     Dosage: UNK
     Route: 065
     Dates: start: 20060117, end: 20100601
  9. CODESAN COMP [Concomitant]
     Indication: COUGH
     Dosage: 10 ML, TID
     Route: 048
     Dates: start: 20171211
  10. ANASTROZOLE. [Concomitant]
     Active Substance: ANASTROZOLE
     Indication: PRODUCT USED FOR UNKNOWN INDICATION
     Dosage: UNK
     Route: 065
     Dates: start: 20050624, end: 20060116
  11. LEE011 [Suspect]
     Active Substance: RIBOCICLIB
     Dosage: 600 MG, QD
     Route: 048
     Dates: start: 20180302
  12. THYROXINE [Concomitant]
     Active Substance: LEVOTHYROXINE
     Indication: HYPOTHYROIDISM
     Dosage: 100 UG, UNK
     Route: 048
     Dates: start: 2016
  13. DOXIMYCIN [Concomitant]
     Active Substance: DOXYCYCLINE
     Indication: COUGH
     Dosage: 300 MG, QD
     Route: 048
     Dates: start: 20171211, end: 20171211

REACTIONS (1)
  - Influenza [Recovered/Resolved]

NARRATIVE: CASE EVENT DATE: 20180222
